FAERS Safety Report 15500844 (Version 3)
Quarter: 2021Q3

REPORT INFORMATION
  Report Type: Spontaneous
  Country: RO (occurrence: RO)
  Receive Date: 20181015
  Receipt Date: 20210722
  Transmission Date: 20211014
  Serious: Yes (Hospitalization, Other)
  Sender: FDA-Public Use
  Company Number: PHHY2018RO126405

PATIENT
  Age: 68 Year
  Sex: Male

DRUGS (2)
  1. IBUPROFEN. [Suspect]
     Active Substance: IBUPROFEN
     Indication: MIGRAINE
     Dosage: 2 G, QD (2 G, QD/OVER 2 G PER DAY)
     Route: 048
  2. CARBAMAZEPINE. [Suspect]
     Active Substance: CARBAMAZEPINE
     Indication: MIGRAINE
     Dosage: 600 MG, QD
     Route: 065

REACTIONS (19)
  - Cachexia [Unknown]
  - Pallor [Unknown]
  - Systemic inflammatory response syndrome [Unknown]
  - Drug abuse [Unknown]
  - Rales [Unknown]
  - Adrenal adenoma [Unknown]
  - Dysphonia [Recovered/Resolved]
  - Lymphadenopathy [Unknown]
  - Overdose [Unknown]
  - Productive cough [Unknown]
  - Anaemia [Unknown]
  - Tracheo-oesophageal fistula [Recovered/Resolved]
  - Cough [Unknown]
  - Haemangioma of liver [Unknown]
  - Hypokalaemia [Unknown]
  - Dysphagia [Recovered/Resolved]
  - Pneumonia [Unknown]
  - Cholestasis [Unknown]
  - Intentional product misuse [Unknown]
